FAERS Safety Report 21905118 (Version 1)
Quarter: 2023Q1

REPORT INFORMATION
  Report Type: Spontaneous
  Country: US (occurrence: None)
  Receive Date: 20230123
  Receipt Date: 20230123
  Transmission Date: 20230418
  Serious: Yes (Hospitalization, Other)
  Sender: FDA-Public Use
  Company Number: None

PATIENT
  Age: 38 Year
  Sex: Male
  Weight: 112.5 kg

DRUGS (17)
  1. FARXIGA [Suspect]
     Active Substance: DAPAGLIFLOZIN PROPANEDIOL
     Indication: Type 2 diabetes mellitus
     Dosage: FREQUENCY : DAILY;?
     Route: 048
     Dates: start: 20230105, end: 20230112
  2. CYCLOBENZAPRINE [Concomitant]
     Active Substance: CYCLOBENZAPRINE
  3. CYMBALTA [Concomitant]
     Active Substance: DULOXETINE HYDROCHLORIDE
  4. DOXYCYCLINE [Concomitant]
     Active Substance: DOXYCYCLINE
  5. Fludrocortisol [Concomitant]
  6. METOPROLOL [Concomitant]
     Active Substance: METOPROLOL
  7. METFORMIN [Concomitant]
     Active Substance: METFORMIN HYDROCHLORIDE
  8. ROSUVASTATIN [Concomitant]
     Active Substance: ROSUVASTATIN
  9. TESTOSTERONE [Concomitant]
     Active Substance: TESTOSTERONE
  10. VICTOZA [Concomitant]
     Active Substance: LIRAGLUTIDE
  11. KETOCONAZOLE [Concomitant]
     Active Substance: KETOCONAZOLE
  12. VITAMIN D [Concomitant]
     Active Substance: VITAMIN D NOS
  13. VITAMIN B12 [Concomitant]
     Active Substance: CYANOCOBALAMIN
  14. VITAMINS [Concomitant]
     Active Substance: VITAMINS
  15. GAS-X [Concomitant]
     Active Substance: DIMETHICONE
  16. MAGOX [Concomitant]
  17. MUCINEX [Concomitant]
     Active Substance: GUAIFENESIN

REACTIONS (2)
  - Malaise [None]
  - Diabetic ketoacidosis [None]

NARRATIVE: CASE EVENT DATE: 20230112
